FAERS Safety Report 16640690 (Version 1)
Quarter: 2019Q3

REPORT INFORMATION
  Report Type: Spontaneous
  Country: US (occurrence: US)
  Receive Date: 20190729
  Receipt Date: 20190729
  Transmission Date: 20191004
  Serious: Yes (Hospitalization, Other)
  Sender: FDA-Public Use
  Company Number: US-STRIDES ARCOLAB LIMITED-2019SP000324

PATIENT
  Age: 30 Year
  Sex: Male

DRUGS (7)
  1. MYCOPHENOLATE MOFETIL. [Suspect]
     Active Substance: MYCOPHENOLATE MOFETIL
     Dosage: REDUCED BY 33 PERCENT (ONE DAY PRIOR TO DIAGNOSIS) UNK
     Route: 065
  2. TACROLIMUS. [Suspect]
     Active Substance: TACROLIMUS
     Indication: HEART TRANSPLANT
     Dosage: UNK
     Route: 065
  3. MYCOPHENOLATE MOFETIL. [Suspect]
     Active Substance: MYCOPHENOLATE MOFETIL
     Indication: HEART TRANSPLANT
     Dosage: 1.5 G, BID
     Route: 065
  4. TACROLIMUS. [Suspect]
     Active Substance: TACROLIMUS
     Dosage: DOSE INCREASED TO 70 PERCENT OF THE HOME REGIMEN (FOUR DAYS POST DIAGNOSIS)
     Route: 065
  5. MYCOPHENOLATE MOFETIL. [Suspect]
     Active Substance: MYCOPHENOLATE MOFETIL
     Dosage: REDUCED BY 66 PERCENT (ON THE DAY OF DIAGNOSIS).
     Route: 065
  6. PREDNISOLONE. [Suspect]
     Active Substance: PREDNISOLONE
     Indication: HEART TRANSPLANT
     Dosage: 0.06 MG/KG/DAY
     Route: 065
  7. TACROLIMUS. [Suspect]
     Active Substance: TACROLIMUS
     Dosage: REDUCED BY 50 PERCENT (ONE DAY POST DIAGNOSIS), UNK
     Route: 065

REACTIONS (8)
  - Productive cough [Recovered/Resolved]
  - Diarrhoea [Recovered/Resolved]
  - Viraemia [Recovered/Resolved]
  - Bronchopulmonary aspergillosis [Unknown]
  - Adenovirus infection [Recovered/Resolved]
  - Pyrexia [Recovered/Resolved]
  - Pneumonia [Recovered/Resolved]
  - Transplant rejection [Unknown]
